FAERS Safety Report 15434172 (Version 1)
Quarter: 2018Q3

REPORT INFORMATION
  Report Type: Spontaneous
  Country: IT (occurrence: IT)
  Receive Date: 20180927
  Receipt Date: 20180927
  Transmission Date: 20181010
  Serious: Yes (Hospitalization)
  Sender: FDA-Public Use
  Company Number: IT-BAYER-2018-181142

PATIENT
  Age: 89 Year
  Sex: Female

DRUGS (2)
  1. CARDIOASPIRIN 100 MG [Suspect]
     Active Substance: ASPIRIN
     Indication: THROMBOSIS PROPHYLAXIS
     Dosage: 1 DF, QD
     Route: 048
     Dates: start: 20180101, end: 20180528
  2. ALMARYTM [Concomitant]
     Active Substance: FLECAINIDE ACETATE
     Dosage: UNK
     Route: 048

REACTIONS (2)
  - Dyspnoea [Unknown]
  - Haemoptysis [Unknown]

NARRATIVE: CASE EVENT DATE: 20180528
